FAERS Safety Report 5914966-1 (Version None)
Quarter: 2008Q4

REPORT INFORMATION
  Report Type: 
  Country: None (occurrence: None)
  Receive Date: 20081010
  Receipt Date: 20081001
  Transmission Date: 20090506
  Serious: Yes (Life-Threatening, Hospitalization)
  Sender: FDA-Public Use
  Company Number: BR-WYE-H06199508

PATIENT
  Sex: Male

DRUGS (4)
  1. EFFEXOR XR [Suspect]
     Indication: DEPRESSION
     Route: 048
  2. CLONAZEPAM [Concomitant]
     Dosage: UNKNOWN
  3. PROMETHAZINE [Concomitant]
     Dosage: UNKNOWN
  4. HALDOL [Concomitant]
     Dosage: UNKNOWW

REACTIONS (2)
  - RESPIRATORY DISORDER [None]
  - SUICIDE ATTEMPT [None]
